FAERS Safety Report 5589243-1 (Version None)
Quarter: 2008Q1

REPORT INFORMATION
  Report Type: 
  Country: None (occurrence: None)
  Receive Date: 20080114
  Receipt Date: 20080107
  Transmission Date: 20080703
  Serious: Yes (Life-Threatening, Hospitalization)
  Sender: FDA-Public Use
  Company Number: PHRM2008FR00447

PATIENT
  Age: 81 Year
  Sex: Female
  Weight: 72.6 kg

DRUGS (8)
  1. AVANDAMET [Concomitant]
  2. LASILIX [Concomitant]
  3. AMARYL [Concomitant]
  4. RAMIPRIL [Concomitant]
  5. PRAVASTATIN [Concomitant]
  6. CELESTAMINE                        /00252801/ [Concomitant]
  7. DIFFU K [Concomitant]
  8. FEMARA [Suspect]
     Indication: BREAST CANCER
     Dosage: 2.5 MG, QD
     Route: 048
     Dates: start: 20010101, end: 20070726

REACTIONS (17)
  - ATRIAL FIBRILLATION [None]
  - CARDIAC FAILURE [None]
  - CHEST PAIN [None]
  - CONGESTIVE CARDIOMYOPATHY [None]
  - COUGH [None]
  - EJECTION FRACTION DECREASED [None]
  - GENERAL PHYSICAL HEALTH DETERIORATION [None]
  - HYPOCAPNIA [None]
  - HYPOXIA [None]
  - LUNG DISORDER [None]
  - OEDEMA PERIPHERAL [None]
  - PLEURAL EFFUSION [None]
  - PULMONARY EMBOLISM [None]
  - PULMONARY HYPERTENSION [None]
  - PULMONARY THROMBOSIS [None]
  - RALES [None]
  - SCAN ABNORMAL [None]
